FAERS Safety Report 23390897 (Version 1)
Quarter: 2024Q1

REPORT INFORMATION
  Report Type: Spontaneous
  Country: US (occurrence: US)
  Receive Date: 20240111
  Receipt Date: 20240111
  Transmission Date: 20240410
  Serious: Yes (Hospitalization)
  Sender: FDA-Public Use
  Company Number: US-BEH-2024167053

PATIENT
  Age: 74 Year
  Sex: Female

DRUGS (3)
  1. ZEMAIRA [Suspect]
     Active Substance: .ALPHA.1-PROTEINASE INHIBITOR HUMAN
     Indication: Alpha-1 antitrypsin deficiency
     Dosage: 4500 MILLIGRAM, QW
     Route: 042
     Dates: start: 202311
  2. EPINEPHRINE [Concomitant]
     Active Substance: EPINEPHRINE
  3. ARALAST NP [Concomitant]
     Active Substance: .ALPHA.1-PROTEINASE INHIBITOR HUMAN

REACTIONS (1)
  - Influenza [Unknown]

NARRATIVE: CASE EVENT DATE: 20231226
